FAERS Safety Report 8179946-7 (Version None)
Quarter: 2012Q1

REPORT INFORMATION
  Report Type: 
  Country: None (occurrence: None)
  Receive Date: 20120302
  Receipt Date: 20120220
  Transmission Date: 20120608
  Serious: Yes (Other)
  Sender: FDA-Public Use
  Company Number: TR-BRISTOL-MYERS SQUIBB COMPANY-16407413

PATIENT
  Age: 38 Year
  Sex: Female

DRUGS (3)
  1. RIFAMPICIN [Suspect]
     Indication: BRUCELLOSIS
  2. STREPTOMYCIN [Suspect]
     Indication: BRUCELLOSIS
  3. TETRACYCLINE [Suspect]
     Indication: BRUCELLOSIS

REACTIONS (4)
  - VITAMIN D DEFICIENCY [None]
  - TETANY [None]
  - HYPOCALCAEMIA [None]
  - ALKALOSIS HYPOKALAEMIC [None]
